FAERS Safety Report 9425371 (Version 2)
Quarter: 2013Q3

REPORT INFORMATION
  Report Type: Spontaneous
  Country: KZ (occurrence: KZ)
  Receive Date: 20130724
  Receipt Date: 20130805
  Transmission Date: 20140515
  Serious: Yes (Other)
  Sender: FDA-Public Use
  Company Number: KZ-JNJFOC-20130708062

PATIENT
  Age: 19 Year
  Sex: Female

DRUGS (1)
  1. DACOGEN [Suspect]
     Indication: MYELODYSPLASTIC SYNDROME
     Route: 042

REACTIONS (3)
  - Pancytopenia [None]
  - Haemorrhage [None]
  - Pyrexia [None]
